FAERS Safety Report 11920998 (Version 1)
Quarter: 2016Q1

REPORT INFORMATION
  Report Type: Spontaneous
  Country: US (occurrence: US)
  Receive Date: 20160115
  Receipt Date: 20160115
  Transmission Date: 20160526
  Serious: No
  Sender: FDA-Public Use
  Company Number: US-ASTELLAS-2015US036091

PATIENT
  Sex: Male

DRUGS (2)
  1. MYRBETRIQ [Suspect]
     Active Substance: MIRABEGRON
     Indication: PRODUCT USED FOR UNKNOWN INDICATION
     Route: 048
     Dates: start: 201509, end: 20150929
  2. MIDODRINE [Interacting]
     Active Substance: MIDODRINE
     Indication: HYPOTENSION
     Dosage: UNK, UNKNOWN FREQ.
     Route: 065

REACTIONS (4)
  - Drug interaction [Unknown]
  - Urinary incontinence [Not Recovered/Not Resolved]
  - Drug ineffective [Unknown]
  - Micturition urgency [Not Recovered/Not Resolved]
